FAERS Safety Report 6210091-3 (Version None)
Quarter: 2009Q2

REPORT INFORMATION
  Report Type: 
  Country: None (occurrence: None)
  Receive Date: 20090601
  Receipt Date: 20090527
  Transmission Date: 20091009
  Serious: No
  Sender: FDA-Public Use
  Company Number: US-JNJFOC-20090406642

PATIENT
  Sex: Female
  Weight: 74.84 kg

DRUGS (5)
  1. DURAGESIC-100 [Suspect]
     Route: 062
  2. DURAGESIC-100 [Suspect]
     Route: 062
  3. DURAGESIC-100 [Suspect]
     Indication: PAIN
     Route: 062
  4. METHADONE [Concomitant]
     Indication: BREAKTHROUGH PAIN
     Route: 048
  5. NEXIUM [Concomitant]
     Indication: BARRETT'S OESOPHAGUS
     Route: 048

REACTIONS (4)
  - APPLICATION SITE IRRITATION [None]
  - FALL [None]
  - INADEQUATE ANALGESIA [None]
  - INAPPROPRIATE SCHEDULE OF DRUG ADMINISTRATION [None]
